FAERS Safety Report 4393485-0 (Version None)
Quarter: 2004Q3

REPORT INFORMATION
  Report Type: 
  Country: None (occurrence: None)
  Receive Date: 20040707
  Receipt Date: 20040707
  Transmission Date: 20050211
  Serious: Yes (Disabling, Congenital Anomaly, Other)
  Sender: FDA-Public Use
  Company Number: None

PATIENT
  Age: 50 Year
  Sex: Male
  Weight: 90.7194 kg

DRUGS (2)
  1. PEG-INTRON [Suspect]
     Indication: HEPATITIS C VIRUS
     Dosage: 1 SHOT PER WEEK
     Dates: start: 20030513, end: 20031022
  2. REBETOL [Suspect]
     Indication: HEPATITIS C VIRUS
     Dosage: 6 CAPSULES PER DAY
     Dates: start: 20030513, end: 20031022

REACTIONS (8)
  - ARTHRALGIA [None]
  - COGNITIVE DISORDER [None]
  - FEELING ABNORMAL [None]
  - MALAISE [None]
  - MENTAL IMPAIRMENT [None]
  - MUSCLE CRAMP [None]
  - PAIN [None]
  - PAIN IN EXTREMITY [None]
